FAERS Safety Report 19985523 (Version 1)
Quarter: 2021Q4

REPORT INFORMATION
  Report Type: Report from Study
  Country: US (occurrence: US)
  Receive Date: 20211021
  Receipt Date: 20211021
  Transmission Date: 20220303
  Serious: Yes (Other)
  Sender: FDA-Public Use
  Company Number: US-GILEAD-2021-0553584

PATIENT
  Age: 80 Year
  Sex: Female

DRUGS (3)
  1. AMBRISENTAN [Suspect]
     Active Substance: AMBRISENTAN
     Indication: Pulmonary arterial hypertension
     Dosage: 10 MG, QD
     Route: 065
     Dates: start: 20190819
  2. ELIQUIS [Concomitant]
     Active Substance: APIXABAN
  3. DILTIAZEM [Concomitant]
     Active Substance: DILTIAZEM

REACTIONS (5)
  - Foot fracture [Unknown]
  - Sneezing [Unknown]
  - Cough [Unknown]
  - Dyspnoea [Unknown]
  - Hypersensitivity [Unknown]
